FAERS Safety Report 7301000-4 (Version None)
Quarter: 2010Q4

REPORT INFORMATION
  Report Type: 
  Country: None (occurrence: None)
  Receive Date: 20101229
  Receipt Date: 20100901
  Transmission Date: 20110411
  Serious: No
  Sender: FDA-Public Use
  Company Number: 1000016055

PATIENT
  Age: 54 Year
  Sex: Female

DRUGS (8)
  1. BYSTOLIC [Suspect]
     Indication: PHAEOCHROMOCYTOMA
     Dosage: 0.8333 MG (2.5 MG, 1 IN 3 D), ORAL
     Route: 048
     Dates: start: 20100823
  2. JANUVIA [Concomitant]
  3. CELLCEPT [Concomitant]
  4. NEXIUM [Concomitant]
  5. VALTREX [Concomitant]
  6. ATACAND [Concomitant]
  7. LOVAZA [Concomitant]
  8. FLUTICASONE [Concomitant]

REACTIONS (1)
  - DIARRHOEA [None]
